FAERS Safety Report 9822287 (Version 1)
Quarter: 2014Q1

REPORT INFORMATION
  Report Type: Spontaneous
  Country: JP (occurrence: JP)
  Receive Date: 20140116
  Receipt Date: 20140116
  Transmission Date: 20141002
  Serious: Yes (Other)
  Sender: FDA-Public Use
  Company Number: JP-ASTELLAS-2014JP000352

PATIENT
  Age: 86 Year
  Sex: Male

DRUGS (1)
  1. FUNGUARD [Suspect]
     Indication: CANDIDA TEST POSITIVE
     Dosage: 150 MG, UNKNOWN/D
     Route: 041
     Dates: start: 20131221, end: 20131231

REACTIONS (1)
  - Hypoglycaemia [Recovering/Resolving]
